FAERS Safety Report 23946318 (Version 2)
Quarter: 2025Q1

REPORT INFORMATION
  Report Type: Spontaneous
  Country: IN (occurrence: IN)
  Receive Date: 20240606
  Receipt Date: 20250214
  Transmission Date: 20250408
  Serious: Yes (Other)
  Sender: PFIZER
  Company Number: IN-PFIZER INC-PV202400043127

PATIENT
  Age: 58 Year
  Sex: Male

DRUGS (1)
  1. LORLATINIB [Suspect]
     Active Substance: LORLATINIB
     Dosage: 100 MG, 1X/DAY (FOR 4 MONTHS)
     Route: 048
     Dates: start: 20231111

REACTIONS (4)
  - Blood thyroid stimulating hormone increased [Recovering/Resolving]
  - Pleural effusion [Unknown]
  - Low density lipoprotein increased [Unknown]
  - Glycosylated haemoglobin increased [Unknown]

NARRATIVE: CASE EVENT DATE: 20240227
